FAERS Safety Report 23358893 (Version 3)
Quarter: 2025Q2

REPORT INFORMATION
  Report Type: Spontaneous
  Country: US (occurrence: US)
  Receive Date: 20240102
  Receipt Date: 20250410
  Transmission Date: 20250716
  Serious: No
  Sender: PFIZER
  Company Number: US-PFIZER INC-202300454370

PATIENT
  Age: 84 Year
  Sex: Male

DRUGS (2)
  1. PAXLOVID [Suspect]
     Active Substance: NIRMATRELVIR\RITONAVIR
     Indication: COVID-19 treatment
     Dates: end: 202312
  2. ROCEPHIN [Suspect]
     Active Substance: CEFTRIAXONE SODIUM
     Route: 030

REACTIONS (5)
  - Lip swelling [Unknown]
  - Weight decreased [Unknown]
  - Malaise [Unknown]
  - Pyrexia [Unknown]
  - Urinary tract infection [Unknown]
